FAERS Safety Report 10373816 (Version 1)
Quarter: 2014Q1

REPORT INFORMATION
  Report Type: Spontaneous
  Country: US (occurrence: None)
  Receive Date: 20140306
  Receipt Date: 20140306
  Transmission Date: 20141002
  Serious: Yes (Other)
  Sender: FDA-Public Use
  Company Number: 163-21880-13094250

PATIENT
  Age: 79 Year
  Sex: Male

DRUGS (9)
  1. REVLIMID (LENALIDOMIDE) (15 MILLIGRAM, CAPSULES) [Suspect]
     Indication: LYMPHOMA
     Route: 048
     Dates: start: 201308
  2. FUROSEMIDE [Concomitant]
  3. DIGOXIN [Concomitant]
  4. SERQUEL (QUETIAPINE FUMARATE) [Concomitant]
  5. METOPROLOL TARTRATE [Concomitant]
  6. TYLENOL (PARACETAMOL) [Concomitant]
  7. SPIRIVA (TIOTROPIUM BROMIDE) [Concomitant]
  8. MAGNESIUM [Concomitant]
  9. BACTRIM [Concomitant]

REACTIONS (1)
  - Pulmonary thrombosis [None]
